FAERS Safety Report 4829532-9 (Version None)
Quarter: 2005Q4

REPORT INFORMATION
  Report Type: 
  Country: None (occurrence: None)
  Receive Date: 20051116
  Receipt Date: 20050607
  Transmission Date: 20060501
  Serious: Yes (Hospitalization, Other)
  Sender: FDA-Public Use
  Company Number: 2005PK01009

PATIENT
  Age: 47 Year
  Sex: Female

DRUGS (21)
  1. SEROQUEL [Suspect]
     Route: 048
     Dates: start: 20040301, end: 20050121
  2. SEROQUEL [Suspect]
     Route: 048
     Dates: start: 20050124, end: 20050124
  3. SEROQUEL [Suspect]
     Route: 048
     Dates: start: 20050125, end: 20050125
  4. SEROQUEL [Suspect]
     Route: 048
     Dates: start: 20050126, end: 20050215
  5. SEROQUEL [Suspect]
     Route: 048
     Dates: start: 20050216, end: 20050228
  6. SEROQUEL [Suspect]
     Route: 048
     Dates: start: 20050301, end: 20050308
  7. SEROQUEL [Suspect]
     Route: 048
     Dates: start: 20050309
  8. ZOLOFT [Suspect]
     Route: 048
     Dates: start: 20050223, end: 20050302
  9. ZOLOFT [Suspect]
     Route: 048
     Dates: start: 20050303, end: 20050311
  10. ZOLOFT [Suspect]
     Route: 048
     Dates: start: 20050312, end: 20050406
  11. TEMESTA [Concomitant]
     Route: 048
     Dates: start: 20050310, end: 20050310
  12. TEMESTA [Concomitant]
     Route: 048
     Dates: start: 20050311, end: 20050314
  13. TEMESTA [Concomitant]
     Route: 048
     Dates: start: 20050315, end: 20050316
  14. TEMESTA [Concomitant]
     Route: 048
     Dates: start: 20050317, end: 20050317
  15. TEMESTA [Concomitant]
     Route: 048
     Dates: start: 20050318, end: 20050322
  16. TEMESTA [Concomitant]
     Route: 048
     Dates: start: 20050407, end: 20050407
  17. TEMESTA [Concomitant]
     Route: 048
     Dates: start: 20050408, end: 20050411
  18. TEMESTA [Concomitant]
     Route: 048
     Dates: start: 20050412, end: 20050413
  19. TEMESTA [Concomitant]
     Route: 048
     Dates: start: 20050414, end: 20050417
  20. TENORETIC 100 [Concomitant]
     Dates: start: 20050309
  21. ELTROXIN [Concomitant]
     Route: 048
     Dates: start: 20040401

REACTIONS (9)
  - AGGRESSION [None]
  - CONDITION AGGRAVATED [None]
  - DELUSION [None]
  - DRUG EFFECT INCREASED [None]
  - EXCITABILITY [None]
  - PSYCHOTIC DISORDER [None]
  - REFUSAL OF TREATMENT BY PATIENT [None]
  - SEROTONIN SYNDROME [None]
  - STRESS [None]
